FAERS Safety Report 14597837 (Version 2)
Quarter: 2018Q2

REPORT INFORMATION
  Report Type: Spontaneous
  Country: US (occurrence: US)
  Receive Date: 20180305
  Receipt Date: 20180430
  Transmission Date: 20180711
  Serious: No
  Sender: FDA-Public Use
  Company Number: US-PFIZER INC-2018085647

PATIENT
  Age: 49 Year
  Sex: Female

DRUGS (2)
  1. XELJANZ XR [Suspect]
     Active Substance: TOFACITINIB CITRATE
     Indication: RHEUMATOID ARTHRITIS
     Dosage: 11 MG, 4-5 TIMES WEEKLY
  2. XELJANZ XR [Suspect]
     Active Substance: TOFACITINIB CITRATE
     Dosage: 1 DF, 1 TABLET DAILY

REACTIONS (6)
  - Peripheral swelling [Unknown]
  - Drug ineffective [Unknown]
  - Dry mouth [Unknown]
  - Dry eye [Unknown]
  - Hypertension [Unknown]
  - Product use issue [Unknown]
